FAERS Safety Report 5146712-6 (Version None)
Quarter: 2006Q4

REPORT INFORMATION
  Report Type: 
  Country: None (occurrence: None)
  Receive Date: 20061109
  Receipt Date: 20060601
  Transmission Date: 20070319
  Serious: Yes (Death)
  Sender: FDA-Public Use
  Company Number: TW-ROCHE-469772

PATIENT

DRUGS (2)
  1. ROCEPHIN [Suspect]
     Route: 065
     Dates: start: 20040730
  2. ANTIBIOTIC NOS [Concomitant]

REACTIONS (1)
  - TOXIC EPIDERMAL NECROLYSIS [None]
